APPROVED DRUG PRODUCT: ACYCLOVIR
Active Ingredient: ACYCLOVIR
Strength: 800MG
Dosage Form/Route: TABLET;ORAL
Application: A075021 | Product #002
Applicant: TEVA PHARMACEUTICALS USA
Approved: Mar 18, 1998 | RLD: No | RS: No | Type: DISCN